FAERS Safety Report 9680126 (Version 1)
Quarter: 2013Q4

REPORT INFORMATION
  Report Type: Spontaneous
  Country: US (occurrence: US)
  Receive Date: 20131111
  Receipt Date: 20131111
  Transmission Date: 20140711
  Serious: No
  Sender: FDA-Public Use
  Company Number: US-009507513-1311USA002476

PATIENT
  Age: 33 Year
  Sex: Female
  Weight: 100.68 kg

DRUGS (2)
  1. NUVARING [Suspect]
     Indication: CONTRACEPTION
     Dosage: UNK
     Route: 067
     Dates: start: 201305, end: 201309
  2. VITAMINS (UNSPECIFIED) [Concomitant]

REACTIONS (3)
  - Unintended pregnancy [Unknown]
  - Haemorrhage [Unknown]
  - Pain [Unknown]
